FAERS Safety Report 5195773-7 (Version None)
Quarter: 2006Q4

REPORT INFORMATION
  Report Type: 
  Country: None (occurrence: None)
  Receive Date: 20061227
  Receipt Date: 20061215
  Transmission Date: 20070319
  Serious: Yes (Hospitalization)
  Sender: FDA-Public Use
  Company Number: 2006PV026369

PATIENT
  Age: 64 Year
  Sex: Male
  Weight: 111.1313 kg

DRUGS (8)
  1. BYETTA [Suspect]
     Indication: DIABETES MELLITUS NON-INSULIN-DEPENDENT
     Dosage: SEE IMAGE, SC
     Route: 058
     Dates: start: 20050701, end: 20050801
  2. BYETTA [Suspect]
     Indication: DIABETES MELLITUS NON-INSULIN-DEPENDENT
     Dosage: SEE IMAGE, SC
     Route: 058
     Dates: start: 20050801, end: 20061205
  3. LISINOPRIL [Suspect]
     Indication: HYPERTENSION
     Dosage: QD; PO
     Route: 048
     Dates: start: 20060901, end: 20061127
  4. LOSARTAN POTASSIUM [Suspect]
     Indication: HYPERTENSION
     Dosage: QD; PO
     Route: 048
     Dates: start: 20060901, end: 20061127
  5. LASIX [Concomitant]
  6. AVANDIA [Concomitant]
  7. NPH INSULIN [Concomitant]
  8. LANTUS [Concomitant]

REACTIONS (14)
  - ANOREXIA [None]
  - BLOOD POTASSIUM INCREASED [None]
  - BLOOD PRESSURE INCREASED [None]
  - CONDITION AGGRAVATED [None]
  - DECREASED APPETITE [None]
  - DEHYDRATION [None]
  - DIARRHOEA [None]
  - FLUID INTAKE REDUCED [None]
  - GASTROOESOPHAGEAL REFLUX DISEASE [None]
  - INFLUENZA [None]
  - JOINT SWELLING [None]
  - NAUSEA [None]
  - RENAL FAILURE [None]
  - VOMITING [None]
